FAERS Safety Report 24656742 (Version 1)
Quarter: 2024Q4

REPORT INFORMATION
  Report Type: Spontaneous
  Country: US (occurrence: US)
  Receive Date: 20241125
  Receipt Date: 20241125
  Transmission Date: 20250115
  Serious: No
  Sender: PRINSTON PHARMACEUTICAL
  Company Number: US-PRINSTON PHARMACEUTICAL INC.-2024PRN00221

PATIENT
  Age: 68 Year
  Sex: Female
  Weight: 58.513 kg

DRUGS (5)
  1. PAROXETINE [Suspect]
     Active Substance: PAROXETINE
     Indication: Anxiety
     Dosage: 20 MG, 1X/DAY
     Route: 048
     Dates: start: 202401
  2. PAROXETINE HYDROCHLORIDE [Suspect]
     Active Substance: PAROXETINE HYDROCHLORIDE
     Indication: Anxiety
     Dosage: 20 MG, 1X/DAY
     Dates: end: 202311
  3. PAROXETINE HYDROCHLORIDE [Suspect]
     Active Substance: PAROXETINE HYDROCHLORIDE
     Dosage: 18 MG, 1X/DAY
     Dates: start: 202311, end: 202401
  4. CALCIUM [Concomitant]
     Active Substance: CALCIUM
  5. MVI [ASCORBIC ACID;DEXPANTHENOL;ERGOCALCIFEROL;NICOTINAMIDE;PYRIDOXINE [Concomitant]

REACTIONS (11)
  - Confusional state [Not Recovered/Not Resolved]
  - Brain fog [Not Recovered/Not Resolved]
  - Fatigue [Not Recovered/Not Resolved]
  - Palpitations [Recovering/Resolving]
  - Middle insomnia [Not Recovered/Not Resolved]
  - Initial insomnia [Not Recovered/Not Resolved]
  - Tachycardia [Recovering/Resolving]
  - Headache [Not Recovered/Not Resolved]
  - Product prescribing issue [Unknown]
  - Wrong technique in product usage process [Unknown]
  - Incorrect dose administered [Unknown]

NARRATIVE: CASE EVENT DATE: 20231101
